FAERS Safety Report 5973393-1 (Version None)
Quarter: 2008Q4

REPORT INFORMATION
  Report Type: 
  Country: None (occurrence: None)
  Receive Date: 20081201
  Receipt Date: 20081127
  Transmission Date: 20090506
  Serious: Yes (Hospitalization)
  Sender: FDA-Public Use
  Company Number: FR-WYE-G02668108

PATIENT
  Age: 55 Year
  Sex: Male

DRUGS (5)
  1. EFFEXOR [Suspect]
     Dosage: OVERDOSE AMOUNT = 1 BOX
     Route: 048
     Dates: start: 20080904, end: 20080904
  2. NOCERTONE [Suspect]
     Dosage: OVERDOSE AMOUNT = 1 BOX
     Route: 048
     Dates: start: 20080904, end: 20080904
  3. TERCIAN [Suspect]
     Dosage: OVERDOSE AMOUNT = 6 BOXES
     Route: 048
     Dates: start: 20080904, end: 20080904
  4. LEXOMIL [Suspect]
     Dosage: OVERDOSE AMOUNT = 1 BOX
     Route: 048
     Dates: start: 20080904, end: 20080904
  5. THERALENE [Suspect]
     Dosage: OVERDOSE AMOUNT = 1 BOTTLE
     Route: 048
     Dates: start: 20080904, end: 20080904

REACTIONS (5)
  - COMA [None]
  - HYPOTENSION [None]
  - INTENTIONAL OVERDOSE [None]
  - OXYGEN SATURATION DECREASED [None]
  - SUICIDE ATTEMPT [None]
